FAERS Safety Report 11740700 (Version 2)
Quarter: 2015Q4

REPORT INFORMATION
  Report Type: Spontaneous
  Country: US (occurrence: US)
  Receive Date: 20151110
  Receipt Date: 20151120
  Transmission Date: 20160304
  Serious: No
  Sender: FDA-Public Use
  Company Number: US-ELI_LILLY_AND_COMPANY-US201202000109

PATIENT
  Age: 77 Year
  Sex: Female

DRUGS (7)
  1. FORTEO [Suspect]
     Active Substance: TERIPARATIDE
     Dosage: 20 UG, QD
     Route: 065
     Dates: start: 20120206
  2. FORTEO [Suspect]
     Active Substance: TERIPARATIDE
     Dosage: 20 UG, QD
  3. FORTEO [Suspect]
     Active Substance: TERIPARATIDE
     Dosage: 20 UG, QD
  4. LOPRESSOR [Concomitant]
     Active Substance: METOPROLOL TARTRATE
  5. CALCIUM [Concomitant]
     Active Substance: CALCIUM
  6. FORTEO [Suspect]
     Active Substance: TERIPARATIDE
     Indication: OSTEOPOROSIS
     Dosage: 20 UG, QD
     Route: 065
     Dates: start: 20120119, end: 20120128
  7. LISINOPRIL. [Concomitant]
     Active Substance: LISINOPRIL

REACTIONS (20)
  - Dry eye [Unknown]
  - Dizziness [Recovered/Resolved]
  - Memory impairment [Unknown]
  - Pollakiuria [Unknown]
  - Presyncope [Recovered/Resolved]
  - Alopecia [Unknown]
  - Abdominal discomfort [Recovered/Resolved]
  - Disorientation [Recovered/Resolved]
  - Vision blurred [Recovered/Resolved]
  - Nausea [Recovered/Resolved]
  - Malaise [Recovered/Resolved]
  - Vertigo [Recovered/Resolved]
  - Hypokinesia [Recovered/Resolved]
  - Peripheral swelling [Recovering/Resolving]
  - Rash pruritic [Recovering/Resolving]
  - Asthenia [Recovered/Resolved]
  - Feeling abnormal [Recovered/Resolved]
  - Vulvovaginal burning sensation [Unknown]
  - Vulvovaginal discomfort [Unknown]
  - Rash erythematous [Recovering/Resolving]

NARRATIVE: CASE EVENT DATE: 20120128
